FAERS Safety Report 7469503-X (Version None)
Quarter: 2011Q2

REPORT INFORMATION
  Report Type: 
  Country: None (occurrence: None)
  Receive Date: 20110510
  Receipt Date: 20110427
  Transmission Date: 20111010
  Serious: Yes (Hospitalization)
  Sender: FDA-Public Use
  Company Number: PHHY2010CA47984

PATIENT
  Sex: Female

DRUGS (8)
  1. ACETAMINOPHEN [Concomitant]
  2. FOLIC ACID [Concomitant]
  3. OXYCONTIN [Concomitant]
  4. FLOVENT [Concomitant]
  5. MELOXICAM [Concomitant]
  6. DIAZEPAM [Concomitant]
  7. TEMAZ [Concomitant]
  8. EXJADE [Suspect]
     Indication: MYELODYSPLASTIC SYNDROME
     Dosage: 1500 MG, QD
     Route: 048

REACTIONS (21)
  - BACTERIAL INFECTION [None]
  - NECK PAIN [None]
  - CONSTIPATION [None]
  - TENDERNESS [None]
  - SLEEP DISORDER [None]
  - INFLUENZA [None]
  - SCRATCH [None]
  - ABDOMINAL PAIN [None]
  - SKIN DISORDER [None]
  - PNEUMONIA [None]
  - BACK PAIN [None]
  - DRY MOUTH [None]
  - ACNE [None]
  - PAIN [None]
  - ALOPECIA [None]
  - EYE DISORDER [None]
  - DIARRHOEA [None]
  - PRURITUS [None]
  - SKIN DISCOLOURATION [None]
  - FATIGUE [None]
  - FEELING ABNORMAL [None]
